FAERS Safety Report 9817560 (Version 2)
Quarter: 2014Q1

REPORT INFORMATION
  Report Type: Spontaneous
  Country: CN (occurrence: CN)
  Receive Date: 20140115
  Receipt Date: 20140127
  Transmission Date: 20141002
  Serious: Yes (Life-Threatening)
  Sender: FDA-Public Use
  Company Number: CN-ROCHE-1332609

PATIENT
  Age: 31 Year
  Sex: Male

DRUGS (1)
  1. TAMIFLU [Suspect]
     Indication: AVIAN INFLUENZA
     Route: 065

REACTIONS (4)
  - Pleural effusion [Recovered/Resolved]
  - Pneumonia viral [Recovered/Resolved]
  - Acute respiratory distress syndrome [Recovered/Resolved]
  - Multi-organ failure [Recovered/Resolved]
